FAERS Safety Report 5609127-X (Version None)
Quarter: 2008Q1

REPORT INFORMATION
  Report Type: 
  Country: None (occurrence: None)
  Receive Date: 20080130
  Receipt Date: 20080130
  Transmission Date: 20080703
  Serious: Yes (Life-Threatening)
  Sender: FDA-Public Use
  Company Number: None

PATIENT
  Age: 48 Year
  Sex: Male
  Weight: 93 kg

DRUGS (3)
  1. LISINOPRIL [Suspect]
     Indication: HYPERTENSION
     Dosage: 40MG PO DAILY
     Route: 048
     Dates: start: 20070701
  2. ATENOLOL [Suspect]
     Indication: HYPERTENSION
     Dosage: 50MG PO DAILY
     Route: 048
     Dates: start: 20070701
  3. AMLODIPINE 7.5MG [Suspect]
     Indication: HYPERTENSION
     Dosage: 7.5MG PO DAILY
     Route: 048
     Dates: start: 20070701

REACTIONS (2)
  - BLOOD PRESSURE DECREASED [None]
  - HEART RATE DECREASED [None]
